FAERS Safety Report 25854249 (Version 2)
Quarter: 2025Q4

REPORT INFORMATION
  Report Type: Report from Study
  Country: US (occurrence: US)
  Receive Date: 20250926
  Receipt Date: 20251006
  Transmission Date: 20260117
  Serious: No
  Sender: BIOGEN
  Company Number: US-BIOGEN-2025BI01324879

PATIENT
  Sex: Female

DRUGS (2)
  1. ZURZUVAE [Suspect]
     Active Substance: ZURANOLONE
     Indication: Perinatal depression
     Dosage: 50 MG BY MOUTH ONCE DAILY IN EVENING FOR 14 DAYS
     Route: 050
     Dates: start: 20250920, end: 20250923
  2. ESCITALOPRAM OXALATE [Concomitant]
     Active Substance: ESCITALOPRAM OXALATE
     Indication: Product used for unknown indication
     Route: 050

REACTIONS (3)
  - Dysarthria [Not Recovered/Not Resolved]
  - Feeling drunk [Not Recovered/Not Resolved]
  - Somnolence [Not Recovered/Not Resolved]
